FAERS Safety Report 8788743 (Version 2)
Quarter: 2012Q4

REPORT INFORMATION
  Report Type: 
  Country: US (occurrence: US)
  Receive Date: 20120916
  Receipt Date: 20121004
  Transmission Date: 20130627
  Serious: No
  Sender: FDA-Public Use
  Company Number: US-009507513-1209USA004658

PATIENT
  Age: 63 Year
  Sex: Female

DRUGS (3)
  1. PEG-INTRON [Suspect]
     Indication: HEPATITIS C
     Dosage: UNK
     Dates: start: 20120906
  2. REBETOL [Suspect]
     Indication: HEPATITIS C
     Dosage: UNK
     Dates: start: 20120906
  3. VICTRELIS [Suspect]
     Indication: HEPATITIS C
     Dosage: UNK

REACTIONS (18)
  - Insomnia [Unknown]
  - Musculoskeletal stiffness [Unknown]
  - Arthralgia [Unknown]
  - Myalgia [Unknown]
  - Influenza [Unknown]
  - Asthenia [Unknown]
  - Pain [Unknown]
  - Hyperhidrosis [Unknown]
  - Headache [Unknown]
  - Myalgia [Unknown]
  - Arthralgia [Unknown]
  - Chest pain [Unknown]
  - Myalgia [Unknown]
  - Influenza like illness [Unknown]
  - Pain [Unknown]
  - Poor quality sleep [Unknown]
  - Decreased appetite [Unknown]
  - Weight decreased [Unknown]
